FAERS Safety Report 13568749 (Version 1)
Quarter: 2017Q2

REPORT INFORMATION
  Report Type: Spontaneous
  Country: US (occurrence: US)
  Receive Date: 20170522
  Receipt Date: 20170522
  Transmission Date: 20170830
  Serious: Yes (Hospitalization, Other)
  Sender: FDA-Public Use
  Company Number: US-TEVA-769972USA

PATIENT
  Age: 67 Year
  Sex: Female

DRUGS (22)
  1. JAKAFI [Suspect]
     Active Substance: RUXOLITINIB
     Indication: THROMBOCYTOPENIA
     Dosage: 30 MILLIGRAM DAILY;
     Route: 048
     Dates: start: 20160914, end: 2017
  2. KEFLEX [Concomitant]
     Active Substance: CEPHALEXIN
  3. HYDROXYCARBAMIDE [Suspect]
     Active Substance: HYDROXYUREA
     Indication: THROMBOCYTOPENIA
     Dosage: 1000 MILLIGRAM DAILY;
     Route: 065
     Dates: start: 20170227, end: 20170306
  4. VENTOLIN HFA [Concomitant]
     Active Substance: ALBUTEROL SULFATE
  5. OMEPRAZOLE. [Concomitant]
     Active Substance: OMEPRAZOLE
     Dates: start: 20160912
  6. FOLIC ACID. [Concomitant]
     Active Substance: FOLIC ACID
     Dates: start: 20150617
  7. REMERON [Concomitant]
     Active Substance: MIRTAZAPINE
     Dates: start: 20150519
  8. ASPIRIN. [Concomitant]
     Active Substance: ASPIRIN
     Dates: start: 20170118
  9. SENOKOT [Concomitant]
     Active Substance: SENNOSIDES
     Dosage: 8.6-50 MG
     Dates: start: 20161122
  10. LEVOTHYROXINE. [Concomitant]
     Active Substance: LEVOTHYROXINE
     Dates: start: 20150519
  11. FERROUS SULFATE. [Concomitant]
     Active Substance: FERROUS SULFATE
     Dosage: 325/65 MG
  12. XANAX [Concomitant]
     Active Substance: ALPRAZOLAM
     Dates: start: 20150519
  13. PROCHLORPERAZINE. [Concomitant]
     Active Substance: PROCHLORPERAZINE
     Dates: start: 20150617
  14. LASIX [Concomitant]
     Active Substance: FUROSEMIDE
  15. MESALAMINE. [Concomitant]
     Active Substance: MESALAMINE
  16. SERTRALINE [Concomitant]
     Active Substance: SERTRALINE HYDROCHLORIDE
     Dates: start: 20160912
  17. LOPERAMIDE [Concomitant]
     Active Substance: LOPERAMIDE
     Dates: start: 20150617
  18. CYANOCOBALAMIN. [Concomitant]
     Active Substance: CYANOCOBALAMIN
     Dates: start: 20150916
  19. AMLODIPINE [Concomitant]
     Active Substance: AMLODIPINE BESYLATE
  20. MIRTAZAPINE. [Concomitant]
     Active Substance: MIRTAZAPINE
  21. LISINOPRIL. [Concomitant]
     Active Substance: LISINOPRIL
  22. TRIAMCINOLONE [Concomitant]
     Active Substance: TRIAMCINOLONE
     Dates: start: 20160817

REACTIONS (3)
  - Pancytopenia [Recovered/Resolved]
  - Product use in unapproved indication [Unknown]
  - Off label use [Unknown]

NARRATIVE: CASE EVENT DATE: 20170227
